FAERS Safety Report 5534107-2 (Version None)
Quarter: 2007Q4

REPORT INFORMATION
  Report Type: 
  Country: None (occurrence: None)
  Receive Date: 20071130
  Receipt Date: 20071116
  Transmission Date: 20080405
  Serious: Yes (Other)
  Sender: FDA-Public Use
  Company Number: 2007S1011924

PATIENT
  Age: 60 Year
  Sex: Male

DRUGS (1)
  1. PRAVASTATIN [Suspect]
     Dosage: 40 MG; DAIL

REACTIONS (7)
  - ASPIRATION PLEURAL CAVITY ABNORMAL [None]
  - C-REACTIVE PROTEIN INCREASED [None]
  - CHEST PAIN [None]
  - DYSPNOEA [None]
  - INFLAMMATION [None]
  - PLEURAL EFFUSION [None]
  - PLEURAL FIBROSIS [None]
